FAERS Safety Report 12432398 (Version 1)
Quarter: 2016Q2

REPORT INFORMATION
  Report Type: Spontaneous
  Country: SE (occurrence: SE)
  Receive Date: 20160603
  Receipt Date: 20160603
  Transmission Date: 20160815
  Serious: Yes (Life-Threatening)
  Sender: FDA-Public Use
  Company Number: SE-GLAXOSMITHKLINE-SE2016GSK076083

PATIENT
  Sex: Female

DRUGS (3)
  1. LITHIONIT [Concomitant]
     Active Substance: LITHIUM SULFATE
     Indication: BIPOLAR DISORDER
     Dosage: UNK
     Dates: start: 2005
  2. VOXRA [Suspect]
     Active Substance: BUPROPION HYDROCHLORIDE
     Indication: DEPRESSION
  3. LAMICTAL [Suspect]
     Active Substance: LAMOTRIGINE
     Indication: DEPRESSION
     Dosage: 25 MG, UNK

REACTIONS (7)
  - Depression [Not Recovered/Not Resolved]
  - Tonsillar hypertrophy [Recovered/Resolved]
  - Haemoglobin decreased [Not Recovered/Not Resolved]
  - Mania [Recovered/Resolved]
  - Skin fissures [Recovered/Resolved]
  - Tongue blistering [Not Recovered/Not Resolved]
  - Drug ineffective [Recovered/Resolved]
